FAERS Safety Report 14631609 (Version 1)
Quarter: 2018Q1

REPORT INFORMATION
  Report Type: Spontaneous
  Country: AU (occurrence: AU)
  Receive Date: 20180313
  Receipt Date: 20180313
  Transmission Date: 20180509
  Serious: Yes (Hospitalization, Other)
  Sender: FDA-Public Use
  Company Number: AU-MYLANLABS-2018M1015325

PATIENT
  Age: 67 Year
  Sex: Female

DRUGS (2)
  1. METHOTREXATE. [Suspect]
     Active Substance: METHOTREXATE
     Indication: BREAST CANCER
     Dosage: 45MG TOTAL ADMINISTERED DURING PAST 4 INSTILLATIONS
     Route: 037
  2. METHOTREXATE. [Suspect]
     Active Substance: METHOTREXATE
     Dosage: 12MG (FIFTH INSTILLATION)
     Route: 037

REACTIONS (6)
  - Cerebral disorder [Recovering/Resolving]
  - Hemiplegia [Recovering/Resolving]
  - Toxicity to various agents [Recovering/Resolving]
  - Encephalitis toxic [Recovering/Resolving]
  - Cerebral cyst [Recovering/Resolving]
  - Meningitis aseptic [Unknown]
